FAERS Safety Report 5569393-6 (Version None)
Quarter: 2007Q4

REPORT INFORMATION
  Report Type: 
  Country: None (occurrence: None)
  Receive Date: 20071220
  Receipt Date: 20071214
  Transmission Date: 20080405
  Serious: Yes (Death, Hospitalization)
  Sender: FDA-Public Use
  Company Number: US-JNJFOC-20071202731

PATIENT
  Age: 42 Year
  Sex: Female

DRUGS (2)
  1. EXTRA STRENGTH TYLENOL [Suspect]
     Indication: DRUG USE FOR UNKNOWN INDICATION
     Dosage: UNKNOWN
  2. PROZAC [Concomitant]
     Indication: DEPRESSION

REACTIONS (3)
  - COMPLETED SUICIDE [None]
  - HEPATIC FAILURE [None]
  - INTENTIONAL OVERDOSE [None]
